FAERS Safety Report 12634973 (Version 1)
Quarter: 2016Q3

REPORT INFORMATION
  Report Type: Spontaneous
  Country: US (occurrence: None)
  Receive Date: 20160808
  Receipt Date: 20160808
  Transmission Date: 20161109
  Serious: No
  Sender: FDA-Public Use
  Company Number: None

PATIENT
  Age: 46 Year
  Sex: Female
  Weight: 77.11 kg

DRUGS (2)
  1. DAILY MV [Concomitant]
  2. BELVIQ [Suspect]
     Active Substance: LORCASERIN HYDROCHLORIDE
     Indication: WEIGHT ABNORMAL
     Dosage: 60 TABLETS TWICE A DAY
     Route: 048
     Dates: start: 20160805

REACTIONS (1)
  - Nausea [None]

NARRATIVE: CASE EVENT DATE: 20160805
